FAERS Safety Report 11444664 (Version 2)
Quarter: 2015Q3

REPORT INFORMATION
  Report Type: Spontaneous
  Country: JP (occurrence: JP)
  Receive Date: 20150902
  Receipt Date: 20150916
  Transmission Date: 20151125
  Serious: Yes (Disabling, Other)
  Sender: FDA-Public Use
  Company Number: JP-TAKEDA-2015TJP015859

PATIENT
  Age: 86 Year
  Sex: Male
  Weight: 43 kg

DRUGS (2)
  1. MEROPENEM                          /01250502/ [Concomitant]
     Active Substance: MEROPENEM
     Indication: PROPHYLAXIS
     Dosage: 1 G, BID
     Route: 041
     Dates: start: 20150814, end: 20150817
  2. TAKEPRON INTRAVENOUS 30MG. [Suspect]
     Active Substance: LANSOPRAZOLE
     Indication: PROPHYLAXIS AGAINST GASTROINTESTINAL ULCER
     Dosage: 30 MG, QD
     Route: 042
     Dates: start: 20150815, end: 20150819

REACTIONS (5)
  - Epigastric discomfort [Unknown]
  - Haematemesis [Unknown]
  - Renal impairment [Not Recovered/Not Resolved]
  - Pleural effusion [Unknown]
  - Vomiting [Unknown]

NARRATIVE: CASE EVENT DATE: 20150815
